FAERS Safety Report 20683222 (Version 1)
Quarter: 2022Q2

REPORT INFORMATION
  Report Type: Spontaneous
  Country: JP (occurrence: JP)
  Receive Date: 20220407
  Receipt Date: 20220407
  Transmission Date: 20220721
  Serious: Yes (Other)
  Sender: FDA-Public Use
  Company Number: JP-SUN PHARMACEUTICAL INDUSTRIES LTD-2022R1-331760

PATIENT
  Age: 75 Year
  Sex: Male

DRUGS (3)
  1. MIRTAZAPINE [Suspect]
     Active Substance: MIRTAZAPINE
     Indication: Leukoencephalopathy
     Dosage: 15 MILLIGRAM, DAILY
     Route: 065
  2. MEFLOQUINE [Suspect]
     Active Substance: MEFLOQUINE
     Indication: Leukoencephalopathy
     Dosage: 275 MILLIGRAM, DAILY
     Route: 065
  3. MEFLOQUINE [Suspect]
     Active Substance: MEFLOQUINE
     Dosage: 275 MILLIGRAM, WEEKLY
     Route: 065

REACTIONS (1)
  - Therapy partial responder [Unknown]
